FAERS Safety Report 25466254 (Version 2)
Quarter: 2025Q3

REPORT INFORMATION
  Report Type: Spontaneous
  Country: US (occurrence: US)
  Receive Date: 20250623
  Receipt Date: 20250720
  Transmission Date: 20251020
  Serious: No
  Sender: DR REDDYS
  Company Number: US-DRL-USA-USA/2025/05/007282

PATIENT
  Age: 64 Year
  Sex: Male

DRUGS (2)
  1. CLONIDINE [Suspect]
     Active Substance: CLONIDINE
     Indication: Blood pressure abnormal
     Route: 062
     Dates: start: 20250415
  2. CLONIDINE [Suspect]
     Active Substance: CLONIDINE
     Route: 062
     Dates: start: 20250506

REACTIONS (4)
  - Adverse event [Unknown]
  - Product packaging issue [Unknown]
  - Drug ineffective [Unknown]
  - Product dose omission issue [Unknown]
